FAERS Safety Report 11024610 (Version 1)
Quarter: 2015Q2

REPORT INFORMATION
  Report Type: Spontaneous
  Country: US (occurrence: None)
  Receive Date: 20150413
  Receipt Date: 20150413
  Transmission Date: 20150821
  Serious: Yes (Hospitalization)
  Sender: FDA-Public Use
  Company Number: None

PATIENT
  Age: 83 Year
  Sex: Female
  Weight: 73 kg

DRUGS (24)
  1. DIPHENHYDRAMINE (SOMINEX) [Concomitant]
  2. TRIAMCINOLONE (ARISTOCORT) [Concomitant]
  3. TYLENOL PM EXTRA [Concomitant]
  4. SUCRALFATE (CARAFATE) [Concomitant]
  5. ALUM HYDROXIDE-MAG TRISILICATE (GAVISCON) [Concomitant]
  6. METOPROLOL (LOPRESSOR) [Concomitant]
  7. HYDRALAZINE (APRESOLINE) [Concomitant]
  8. WARFARIN [Suspect]
     Active Substance: WARFARIN
     Route: 048
  9. REMERON [Concomitant]
     Active Substance: MIRTAZAPINE
  10. LOPERAMIDER (IMODIIUM) [Concomitant]
  11. DIPHENHYDRAMINE-APAP [Concomitant]
  12. WARFARIN [Suspect]
     Active Substance: WARFARIN
     Indication: CORONARY ARTERY DISEASE
     Route: 048
  13. PREDNISONE (DELTASONE) [Concomitant]
  14. ALPRAZOLAM (XANAX) [Concomitant]
  15. LIPITOR [Concomitant]
     Active Substance: ATORVASTATIN CALCIUM
  16. CHOLECALCIFEROL (VITAMIN D) [Concomitant]
  17. NITROGLYCERIN (NITROSTAT) [Concomitant]
  18. WARFARIN [Suspect]
     Active Substance: WARFARIN
     Indication: PULMONARY EMBOLISM
     Route: 048
  19. PANTOPRAZOLE ((PROTONIX) [Concomitant]
  20. GLIPIZIDE  (GLUCOTROL) [Concomitant]
  21. WARFARIN [Suspect]
     Active Substance: WARFARIN
     Indication: ATRIAL FIBRILLATION
     Route: 048
  22. FLUCONAZOLE (DIFLUCAN) [Concomitant]
  23. NYSTATIN (MYCOSTATIN) [Concomitant]
  24. BENAZEPRIL (LOTENSIN) [Concomitant]

REACTIONS (10)
  - Pancreatic pseudocyst [None]
  - Oesophageal candidiasis [None]
  - Erosive oesophagitis [None]
  - International normalised ratio increased [None]
  - Gastritis erosive [None]
  - Melaena [None]
  - Haemoglobin decreased [None]
  - Asthenia [None]
  - Diarrhoea [None]
  - Dizziness [None]

NARRATIVE: CASE EVENT DATE: 20150321
